FAERS Safety Report 8480424-6 (Version None)
Quarter: 2012Q3

REPORT INFORMATION
  Report Type: 
  Country: None (occurrence: None)
  Receive Date: 20120702
  Receipt Date: 20120622
  Transmission Date: 20120928
  Serious: Yes (Hospitalization)
  Sender: FDA-Public Use
  Company Number: FR-BIOGENIDEC-2009BI020943

PATIENT
  Age: 55 Year
  Sex: Female

DRUGS (12)
  1. LEXOMIL [Concomitant]
  2. ACETAMINOPHEN [Concomitant]
  3. TYSABRI [Suspect]
     Indication: MULTIPLE SCLEROSIS
     Route: 042
     Dates: start: 20071128
  4. DILTIAZEM HCL [Concomitant]
  5. BISOPROLOL FUMARATE [Concomitant]
  6. METFORMIN HCL [Concomitant]
  7. IMODIUM [Concomitant]
  8. DIHYDROERGOTAMINE MESYLATE [Concomitant]
  9. EZETIMIBE [Concomitant]
  10. TIAPRIDAL [Concomitant]
  11. AMITRIPTYLINE HCL [Concomitant]
  12. ECAZIDE [Concomitant]

REACTIONS (1)
  - AFFECTIVE DISORDER [None]
